FAERS Safety Report 15800428 (Version 1)
Quarter: 2019Q1

REPORT INFORMATION
  Report Type: Spontaneous
  Country: US (occurrence: US)
  Receive Date: 20190108
  Receipt Date: 20190108
  Transmission Date: 20190417
  Serious: No
  Sender: FDA-Public Use
  Company Number: US-UPSHER-SMITH LABORATORIES, LLC-2018USL00573

PATIENT
  Weight: 9.6 kg

DRUGS (6)
  1. LEVETIRACETAM. [Concomitant]
     Active Substance: LEVETIRACETAM
  2. LEVOCARNITINE. [Concomitant]
     Active Substance: LEVOCARNITINE
  3. ONFI [Concomitant]
     Active Substance: CLOBAZAM
  4. VIGADRONE [Suspect]
     Active Substance: VIGABATRIN
     Dosage: 500 MG, 2X/DAY
     Route: 048
     Dates: start: 20181026
  5. VIGADRONE [Suspect]
     Active Substance: VIGABATRIN
     Indication: INFANTILE SPASMS
     Dosage: 750 MG, 2X/DAY
     Route: 048
     Dates: start: 20180809, end: 20181025
  6. CYTRA-K [Concomitant]
     Active Substance: CITRIC ACID MONOHYDRATE\POTASSIUM CITRATE

REACTIONS (2)
  - Somnolence [Recovering/Resolving]
  - Vomiting [Unknown]

NARRATIVE: CASE EVENT DATE: 2018
